FAERS Safety Report 9240840 (Version 1)
Quarter: 2013Q2

REPORT INFORMATION
  Report Type: Spontaneous
  Country: US (occurrence: None)
  Receive Date: 20130418
  Receipt Date: 20130418
  Transmission Date: 20140414
  Serious: No
  Sender: FDA-Public Use
  Company Number: None

PATIENT
  Sex: 0

DRUGS (1)
  1. MINI BAG PLUS 100ML NS BAXTER [Suspect]
     Route: 048
     Dates: start: 20130416, end: 20130416

REACTIONS (1)
  - Device failure [None]
